FAERS Safety Report 11469239 (Version 3)
Quarter: 2015Q4

REPORT INFORMATION
  Report Type: Spontaneous
  Country: US (occurrence: US)
  Receive Date: 20150908
  Receipt Date: 20151111
  Transmission Date: 20160304
  Serious: Yes (Death, Hospitalization, Other)
  Sender: FDA-Public Use
  Company Number: US-BRISTOL-MYERS SQUIBB COMPANY-BMS-2015-059313

PATIENT
  Age: 59 Year
  Sex: Male

DRUGS (1)
  1. OPDIVO [Suspect]
     Active Substance: NIVOLUMAB
     Indication: NON-SMALL CELL LUNG CANCER
     Dosage: 3 MG/KG, 265 MG
     Route: 042

REACTIONS (4)
  - Malignant neoplasm progression [Unknown]
  - Dehydration [Unknown]
  - Death [Fatal]
  - Pleural effusion [Unknown]

NARRATIVE: CASE EVENT DATE: 20150822
